FAERS Safety Report 8270061-0 (Version None)
Quarter: 2012Q2

REPORT INFORMATION
  Report Type: 
  Country: None (occurrence: None)
  Receive Date: 20120406
  Receipt Date: 20120326
  Transmission Date: 20120825
  Serious: Yes (Other)
  Sender: FDA-Public Use
  Company Number: 1222199

PATIENT
  Age: 79 Year
  Sex: Male
  Weight: 92 kg

DRUGS (5)
  1. EMEND [Concomitant]
  2. CARBOPLATIN [Suspect]
     Indication: LUNG NEOPLASM MALIGNANT
     Dosage: 200 MG, WEEKLY, IVPB OTHER
     Dates: start: 20111123, end: 20120201
  3. PACLITAXEL [Concomitant]
  4. (DEXAMETHASONE) [Concomitant]
  5. ALOXI [Concomitant]

REACTIONS (5)
  - DYSPNOEA [None]
  - RESPIRATORY DISORDER [None]
  - HYPERSENSITIVITY [None]
  - COUGH [None]
  - WHEEZING [None]
